FAERS Safety Report 5839524-9 (Version None)
Quarter: 2008Q3

REPORT INFORMATION
  Report Type: 
  Country: None (occurrence: None)
  Receive Date: 20080807
  Receipt Date: 20080729
  Transmission Date: 20090109
  Serious: Yes (Other)
  Sender: FDA-Public Use
  Company Number: 2008016176

PATIENT
  Age: 65 Year
  Sex: Male
  Weight: 290 kg

DRUGS (12)
  1. ZYRTEC [Suspect]
     Indication: SEASONAL ALLERGY
     Dosage: UNSPECIFIED, ORAL
     Route: 048
     Dates: start: 20080525, end: 20080608
  2. XYZAL [Suspect]
     Indication: SEASONAL ALLERGY
     Dosage: 5 MG, ORAL
     Route: 048
     Dates: start: 20080512, end: 20080516
  3. XYZAL [Suspect]
     Indication: SEASONAL ALLERGY
     Dosage: 5 MG 1/D, ORAL
     Route: 048
     Dates: start: 20080610, end: 20080613
  4. CLARITIN [Suspect]
     Indication: SEASONAL ALLERGY
     Dosage: UNSPECIFIED, ORAL
     Route: 048
  5. WARFARIN SODIUM [Concomitant]
  6. CIALIS [Concomitant]
  7. COZAAR [Concomitant]
  8. LIPITOR [Concomitant]
  9. TOPROL-XL [Concomitant]
  10. ASPIRIN [Concomitant]
  11. SULTOPRIDE [Concomitant]
  12. AMLODIPINE [Concomitant]

REACTIONS (3)
  - DRUG INEFFECTIVE [None]
  - INTERNATIONAL NORMALISED RATIO INCREASED [None]
  - PROTHROMBIN TIME PROLONGED [None]
